FAERS Safety Report 25336883 (Version 1)
Quarter: 2025Q2

REPORT INFORMATION
  Report Type: Spontaneous
  Country: US (occurrence: US)
  Receive Date: 20250520
  Receipt Date: 20250520
  Transmission Date: 20250717
  Serious: Yes (Hospitalization)
  Sender: CHIESI
  Company Number: US-CHIESI-2025CHF03285

PATIENT
  Age: 12 Year
  Sex: Female
  Weight: 54 kg

DRUGS (2)
  1. FERRIPROX [Suspect]
     Active Substance: DEFERIPRONE
     Indication: Sickle cell disease
     Dosage: 1000 MILLIGRAM, TID
     Route: 048
     Dates: start: 20240216
  2. FERRIPROX [Suspect]
     Active Substance: DEFERIPRONE
     Indication: Blood disorder

REACTIONS (3)
  - Cerebrovascular accident [Unknown]
  - Off label use [Not Recovered/Not Resolved]
  - Product dose omission issue [Not Recovered/Not Resolved]

NARRATIVE: CASE EVENT DATE: 20240216
